FAERS Safety Report 7313636-5 (Version None)
Quarter: 2011Q1

REPORT INFORMATION
  Report Type: 
  Country: None (occurrence: None)
  Receive Date: 20110224
  Receipt Date: 20110224
  Transmission Date: 20110831
  Serious: Yes (Hospitalization)
  Sender: FDA-Public Use
  Company Number: None

PATIENT
  Sex: Male

DRUGS (1)
  1. STERILE ALCOHOL SWABS MANUFACTURED BY THE TRIAD GROUP BOCA [Suspect]
     Indication: THERAPEUTIC SKIN CARE TOPICAL
     Dosage: FOUR TIME DAY EVERY DAY

REACTIONS (5)
  - FALL [None]
  - ASTHENIA [None]
  - FEELING ABNORMAL [None]
  - HYPERCHLORHYDRIA [None]
  - BODY TEMPERATURE INCREASED [None]
